FAERS Safety Report 9037287 (Version 1)
Quarter: 2013Q1

REPORT INFORMATION
  Report Type: Report from Study
  Country: US (occurrence: US)
  Receive Date: 20130129
  Receipt Date: 20130129
  Transmission Date: 20140127
  Serious: No
  Sender: FDA-Public Use
  Company Number: US-ABBOTT-12P-163-0890070-00

PATIENT
  Age: 48 Year
  Sex: Female

DRUGS (10)
  1. HUMIRA 40 MG/0.8 ML PEN [Suspect]
     Indication: CROHN^S DISEASE
     Dates: start: 20120104
  2. NEXIUM [Concomitant]
     Indication: GASTROOESOPHAGEAL REFLUX DISEASE
     Route: 048
  3. IMURAN [Concomitant]
     Indication: CROHN^S DISEASE
  4. LYRICA [Concomitant]
     Indication: FIBROMYALGIA
  5. ALDACTONE [Concomitant]
     Indication: HYPERTENSION
  6. PREDNISONE [Concomitant]
     Indication: INFLAMMATION
     Route: 048
  7. REQUIP [Concomitant]
     Indication: RESTLESS LEGS SYNDROME
     Route: 048
  8. FLEXERIL [Concomitant]
     Indication: MYALGIA
     Route: 048
  9. LORTAB [Concomitant]
     Indication: PAIN
     Dosage: 10/325MG AS REQUIRED
  10. FOSAMAX [Concomitant]
     Indication: OSTEOPOROSIS

REACTIONS (5)
  - Injection site pain [Unknown]
  - Dysgeusia [Unknown]
  - Heart rate increased [Unknown]
  - Chest discomfort [Recovering/Resolving]
  - Swollen tongue [Unknown]
